FAERS Safety Report 7237829-0 (Version None)
Quarter: 2011Q1

REPORT INFORMATION
  Report Type: 
  Country: None (occurrence: None)
  Receive Date: 20110121
  Receipt Date: 20110117
  Transmission Date: 20110831
  Serious: Yes (Hospitalization)
  Sender: FDA-Public Use
  Company Number: FR-ROCHE-753929

PATIENT
  Age: 70 Year
  Sex: Male

DRUGS (4)
  1. CYMEVENE [Suspect]
     Dosage: DOSAGE WAS DECREASED
     Route: 065
  2. NEORAL [Concomitant]
  3. CYMEVENE [Suspect]
     Dosage: FORM-INFUSION
     Route: 065
  4. CELLCEPT [Concomitant]

REACTIONS (2)
  - ACUTE PULMONARY OEDEMA [None]
  - RENAL FAILURE ACUTE [None]
